FAERS Safety Report 10192436 (Version 2)
Quarter: 2014Q2

REPORT INFORMATION
  Report Type: Report from Study
  Country: JP (occurrence: JP)
  Receive Date: 20140523
  Receipt Date: 20140612
  Transmission Date: 20141212
  Serious: Yes (Other)
  Sender: FDA-Public Use
  Company Number: JP-OTSUKA-JP-2014-14211

PATIENT
  Age: 71 Year
  Sex: Male
  Weight: 50.4 kg

DRUGS (23)
  1. SAMSCA [Suspect]
     Indication: OEDEMA DUE TO CARDIAC DISEASE
     Dosage: 7.5 MG MILLIGRAM(S), QPM
     Route: 048
     Dates: start: 20140428, end: 20140428
  2. SAMSCA [Suspect]
     Dosage: 7.5 MG MILLIGRAM(S), BID
     Route: 048
     Dates: start: 20140429
  3. LASIX [Suspect]
     Indication: CARDIAC FAILURE
     Dosage: 40 MG MILLIGRAM(S), DAILY DOSE
     Route: 042
     Dates: end: 20140427
  4. LASIX [Suspect]
     Dosage: 60 MG MILLIGRAM(S), DAILY DOSE
     Route: 042
     Dates: start: 20140428, end: 20140428
  5. LASIX [Suspect]
     Dosage: 100 MG MILLIGRAM(S), DAILY DOSE
     Route: 042
     Dates: start: 20140429, end: 20140429
  6. LASIX [Suspect]
     Dosage: 60 MG MILLIGRAM(S), DAILY DOSE
     Route: 042
     Dates: start: 20140430, end: 20140502
  7. LASIX [Suspect]
     Dosage: 20 MG MILLIGRAM(S), DAILY DOSE
     Route: 042
     Dates: start: 20140503, end: 20140504
  8. LASIX [Suspect]
     Indication: CARDIAC FAILURE
     Dosage: 40 MG MILLIGRAM(S), DAILY DOSE
     Route: 048
     Dates: start: 20140504
  9. CEFTRIAXONE SODIUM [Concomitant]
     Dosage: 2 G GRAM(S), DAILY DOSE
     Route: 042
     Dates: end: 20140427
  10. KREMEZIN [Concomitant]
     Dosage: 6 G GRAM(S), DAILY DOSE
     Route: 048
     Dates: end: 20140428
  11. HANP [Concomitant]
     Indication: CARDIAC FAILURE
     Dosage: 0.04 UG/KG/MIN, DAILY DOSE
     Route: 041
     Dates: end: 20140428
  12. HANP [Concomitant]
     Dosage: 0.05 UG/KG/MIN, DAILY DOSE
     Route: 041
     Dates: start: 20140429, end: 20140429
  13. HANP [Concomitant]
     Dosage: 0.025 UG/KG/MIN, DAILY DOSE
     Route: 041
     Dates: start: 20140430, end: 20140501
  14. BAYASPIRIN [Concomitant]
     Dosage: 100 MG MILLIGRAM(S), DAILY DOSE
     Route: 048
  15. FLUITRAN [Concomitant]
     Dosage: 2 MG MILLIGRAM(S), DAILY DOSE
     Route: 048
  16. PARIET [Concomitant]
     Dosage: 10 MG MILLIGRAM(S), DAILY DOSE
     Route: 048
  17. ALDOMET [Concomitant]
     Dosage: 250 MG MILLIGRAM(S), DAILY DOSE
     Route: 048
  18. ADALAT CR [Concomitant]
     Dosage: 40 MG MILLIGRAM(S), DAILY DOSE
     Route: 048
  19. MAINTATE [Concomitant]
     Indication: CARDIAC FAILURE
     Dosage: 1.25 MG MILLIGRAM(S), DAILY DOSE
     Route: 048
  20. FEBURIC [Concomitant]
     Dosage: 10 MG MILLIGRAM(S), DAILY DOSE
     Route: 048
  21. EPADEL [Concomitant]
     Dosage: 1800 MG MILLIGRAM(S), DAILY DOSE
     Route: 048
  22. FINIBAX [Concomitant]
     Dosage: 0.75 G GRAM(S), DAILY DOSE
     Route: 042
     Dates: start: 20140428, end: 20140508
  23. CALBLOCK [Concomitant]
     Dosage: 8 MG MILLIGRAM(S), DAILY DOSE
     Route: 048
     Dates: start: 20140429

REACTIONS (1)
  - Blood urea increased [Recovering/Resolving]
